FAERS Safety Report 10572992 (Version 1)
Quarter: 2014Q4

REPORT INFORMATION
  Report Type: Spontaneous
  Country: GB (occurrence: None)
  Receive Date: 20141106
  Receipt Date: 20141106
  Transmission Date: 20150529
  Serious: Yes (Life-Threatening, Hospitalization)
  Sender: FDA-Public Use
  Company Number: FK201404756

PATIENT
  Age: 63 Year
  Weight: 60.9 kg

DRUGS (7)
  1. MIRTAZAPINE. [Concomitant]
     Active Substance: MIRTAZAPINE
  2. OMEPRAZOLE. [Concomitant]
     Active Substance: OMEPRAZOLE
  3. CISPLATIN. [Suspect]
     Active Substance: CISPLATIN
     Indication: NON-SMALL CELL LUNG CANCER
     Dosage: 130 MG, INTRAVENOUS (NOT OTERHWISE SPECIFIED)
     Route: 042
     Dates: start: 20140915
  4. ALIMTA [Suspect]
     Active Substance: PEMETREXED DISODIUM
     Indication: NON-SMALL CELL LUNG CANCER
     Dosage: 900 MG, INTRAVENOUS (NOT OTHERWISE SPECIFIED)
     Route: 042
     Dates: start: 20140915
  5. SODIUM DOCUSATE [Concomitant]
     Active Substance: DOCUSATE SODIUM
  6. ZOMORPH(MORPHINE SULFATE) [Concomitant]
  7. FOLIC ACID(FOLIC ACID) [Concomitant]

REACTIONS (2)
  - Pancytopenia [None]
  - Hypomagnesaemia [None]
